FAERS Safety Report 4831756-1 (Version None)
Quarter: 2005Q4

REPORT INFORMATION
  Report Type: 
  Country: None (occurrence: None)
  Receive Date: 20051114
  Receipt Date: 20051025
  Transmission Date: 20060501
  Serious: Yes (Hospitalization, Other)
  Sender: FDA-Public Use
  Company Number: ENTC2005-0205

PATIENT
  Age: 70 Year
  Sex: Male

DRUGS (10)
  1. STALEVO 100 [Suspect]
     Indication: PARKINSON'S DISEASE
     Dosage: 100/25/200 MG QID , ORAL
     Route: 048
     Dates: start: 20040924, end: 20041020
  2. REQUIP [Concomitant]
  3. AMANTAN [Concomitant]
  4. SEROXAT [Concomitant]
  5. INDERAL [Concomitant]
  6. FOSAMAX [Concomitant]
  7. LERIVON [Concomitant]
  8. TEMESTA [Concomitant]
  9. SINEMET [Concomitant]
  10. VIGITEN [Concomitant]

REACTIONS (8)
  - ANAEMIA [None]
  - CHOLELITHIASIS [None]
  - CHOLESTASIS [None]
  - CYTOLYTIC HEPATITIS [None]
  - DYSPEPSIA [None]
  - OESOPHAGITIS [None]
  - PALLOR [None]
  - SMALL INTESTINAL HAEMORRHAGE [None]
